FAERS Safety Report 5402036-0 (Version None)
Quarter: 2007Q3

REPORT INFORMATION
  Report Type: 
  Country: None (occurrence: None)
  Receive Date: 20070727
  Receipt Date: 20070717
  Transmission Date: 20080115
  Serious: Yes (Hospitalization)
  Sender: FDA-Public Use
  Company Number: 2007AL002817

PATIENT
  Age: 73 Year
  Sex: Male

DRUGS (8)
  1. METFORMIN HYDROCHLORIDE [Suspect]
     Indication: BLOOD GLUCOSE INCREASED
     Dosage: 850 MG;Q8H;PO
     Route: 048
  2. CLOPIDOGREL [Concomitant]
  3. SIMVASTATIN [Concomitant]
  4. ENOXAPARIN SODIUM [Concomitant]
  5. ENALAPRIL MALEATE [Concomitant]
  6. HALOPERIDOL [Concomitant]
  7. CLOMETHIAZOLE [Concomitant]
  8. INSULIN [Concomitant]

REACTIONS (12)
  - BLOOD BICARBONATE DECREASED [None]
  - BLOOD CREATININE INCREASED [None]
  - BLOOD POTASSIUM INCREASED [None]
  - CONTINUOUS HAEMODIAFILTRATION [None]
  - HEART RATE INCREASED [None]
  - HYPERCALCAEMIA [None]
  - HYPOPERFUSION [None]
  - LACTIC ACIDOSIS [None]
  - LOSS OF CONSCIOUSNESS [None]
  - OXYGEN SATURATION DECREASED [None]
  - RENAL IMPAIRMENT [None]
  - SHOCK [None]
